FAERS Safety Report 6288071-1 (Version None)
Quarter: 2009Q3

REPORT INFORMATION
  Report Type: 
  Country: None (occurrence: None)
  Receive Date: 20090729
  Receipt Date: 20090725
  Transmission Date: 20100115
  Serious: Yes (Death, Other)
  Sender: FDA-Public Use
  Company Number: PHHY2009BR30986

PATIENT
  Sex: Male

DRUGS (2)
  1. DIOVAN [Suspect]
     Indication: CARDIAC DISORDER
     Dosage: 1 TABLET IN THE MORNING
     Route: 048
  2. DIGOXIN [Concomitant]
     Dosage: 1 TABLET PER DAY
     Route: 048

REACTIONS (2)
  - METASTATIC NEOPLASM [None]
  - NEOPLASM MALIGNANT [None]
